FAERS Safety Report 17440957 (Version 2)
Quarter: 2020Q2

REPORT INFORMATION
  Report Type: Spontaneous
  Country: US (occurrence: US)
  Receive Date: 20200220
  Receipt Date: 20200420
  Transmission Date: 20200713
  Serious: No
  Sender: FDA-Public Use
  Company Number: US-SHIRE-US202006164

PATIENT
  Sex: Female
  Weight: 81.63 kg

DRUGS (10)
  1. NEXIUM I.V. [Concomitant]
     Active Substance: ESOMEPRAZOLE SODIUM
     Indication: GASTROOESOPHAGEAL REFLUX DISEASE
     Dosage: 40 MILLIGRAM, 2X/DAY:BID
     Route: 065
     Dates: start: 2012
  2. CLONAZEPAM. [Concomitant]
     Active Substance: CLONAZEPAM
     Indication: ANXIETY
     Dosage: 5 MILLIGRAM, 1X/DAY:QD
     Route: 065
     Dates: start: 2010
  3. VESICARE [Concomitant]
     Active Substance: SOLIFENACIN SUCCINATE
     Indication: URINARY INCONTINENCE
     Dosage: 10 MILLIGRAM, 1X/DAY:QD
     Route: 065
  4. SIMVASTATIN. [Concomitant]
     Active Substance: SIMVASTATIN
     Indication: BLOOD CHOLESTEROL INCREASED
     Dosage: 10 MILLIGRAM, 1X/DAY:QD
     Route: 065
     Dates: start: 2010
  5. PROMETHAZINE [Concomitant]
     Active Substance: PROMETHAZINE HYDROCHLORIDE
     Indication: NAUSEA
     Dosage: 5 MILLIGRAM, 1X/DAY:QD
     Route: 065
     Dates: start: 2016
  6. ADDERALL XR [Suspect]
     Active Substance: AMPHETAMINE ASPARTATE\AMPHETAMINE SULFATE\DEXTROAMPHETAMINE SACCHARATE\DEXTROAMPHETAMINE SULFATE
     Indication: NARCOLEPSY
     Dosage: 5 MILLIGRAM, 1X/DAY:QD
     Route: 048
     Dates: start: 2018
  7. LEXAPRO [Concomitant]
     Active Substance: ESCITALOPRAM OXALATE
     Indication: DEPRESSION
     Dosage: 40 MILLIGRAM, 1X/DAY:QD
     Route: 065
  8. ZYPREXA [Concomitant]
     Active Substance: OLANZAPINE
     Indication: BRAIN INJURY
     Dosage: 5 MILLIGRAM, 1X/DAY:QD
     Route: 065
     Dates: start: 2005
  9. ADDERALL XR [Suspect]
     Active Substance: AMPHETAMINE ASPARTATE\AMPHETAMINE SULFATE\DEXTROAMPHETAMINE SACCHARATE\DEXTROAMPHETAMINE SULFATE
     Dosage: 5 MILLIGRAM
     Route: 048
     Dates: start: 201912
  10. TRAZODONE [Concomitant]
     Active Substance: TRAZODONE HYDROCHLORIDE
     Indication: SLEEP DISORDER
     Dosage: 125 MILLIGRAM, 1X/DAY:QD
     Route: 065

REACTIONS (9)
  - Psychomotor hyperactivity [Unknown]
  - Nervousness [Unknown]
  - Intentional product use issue [Not Recovered/Not Resolved]
  - Thinking abnormal [Unknown]
  - Inappropriate schedule of product administration [Not Recovered/Not Resolved]
  - Inability to afford medication [Unknown]
  - Gait inability [Unknown]
  - Headache [Unknown]
  - Fatigue [Unknown]

NARRATIVE: CASE EVENT DATE: 2018
